FAERS Safety Report 9314299 (Version 1)
Quarter: 2013Q2

REPORT INFORMATION
  Report Type: Spontaneous
  Country: US (occurrence: None)
  Receive Date: 20130524
  Receipt Date: 20130524
  Transmission Date: 20140414
  Serious: Yes (Hospitalization)
  Sender: FDA-Public Use
  Company Number: None

PATIENT
  Age: 65 Year
  Sex: Female

DRUGS (2)
  1. XELODA [Suspect]
     Route: 048
     Dates: start: 20130308, end: 20130311
  2. XELODA [Suspect]
     Route: 048
     Dates: start: 20130308, end: 20130311

REACTIONS (3)
  - Musculoskeletal pain [None]
  - Pain in jaw [None]
  - Chest pain [None]
